FAERS Safety Report 11807857 (Version 1)
Quarter: 2015Q4

REPORT INFORMATION
  Report Type: Spontaneous
  Country: DK (occurrence: DK)
  Receive Date: 20151207
  Receipt Date: 20151207
  Transmission Date: 20160305
  Serious: Yes (Hospitalization, Disabling, Other)
  Sender: FDA-Public Use
  Company Number: DK-GLAXOSMITHKLINE-DK2015171660

PATIENT
  Age: 63 Year
  Sex: Male

DRUGS (2)
  1. ZINACEF [Suspect]
     Active Substance: CEFUROXIME SODIUM
     Indication: ANTIBIOTIC THERAPY
     Dosage: DOSIS: 1,5 GRAM ZINACEF KL. 9.30, HVILKET BLEV GENTAGET KL. 13.30.
     Route: 042
     Dates: start: 20140228, end: 20140228
  2. ZINACEF [Suspect]
     Active Substance: CEFUROXIME SODIUM
     Dosage: UNK
     Route: 042
     Dates: start: 20140305, end: 20140305

REACTIONS (12)
  - Wheelchair user [Not Recovered/Not Resolved]
  - Vomiting [Recovered/Resolved]
  - Cardiac arrest [Recovered/Resolved]
  - Paralysis [Not Recovered/Not Resolved]
  - Dyspnoea [Recovered/Resolved]
  - Urinary retention [Not Recovered/Not Resolved]
  - Anaphylactic shock [Recovered/Resolved]
  - Blood pressure decreased [Recovered/Resolved]
  - Erythema [Recovered/Resolved]
  - Nervous system disorder [Not Recovered/Not Resolved]
  - Aphasia [Recovered/Resolved]
  - Brain hypoxia [Recovered/Resolved with Sequelae]

NARRATIVE: CASE EVENT DATE: 20140228
